FAERS Safety Report 12569366 (Version 1)
Quarter: 2016Q3

REPORT INFORMATION
  Report Type: Spontaneous
  Country: US (occurrence: US)
  Receive Date: 20160719
  Receipt Date: 20160719
  Transmission Date: 20161109
  Serious: No
  Sender: FDA-Public Use
  Company Number: US-BEH-2016070801

PATIENT
  Sex: Female
  Weight: 63.49 kg

DRUGS (33)
  1. EPIPEN [Concomitant]
     Active Substance: EPINEPHRINE
  2. DOXYCYCLINE. [Concomitant]
     Active Substance: DOXYCYCLINE
  3. NADOLOL. [Concomitant]
     Active Substance: NADOLOL
  4. TEMAZEPAM. [Concomitant]
     Active Substance: TEMAZEPAM
  5. DIPHENHYDRAMINE. [Concomitant]
     Active Substance: DIPHENHYDRAMINE
  6. LEVAQUIN [Concomitant]
     Active Substance: LEVOFLOXACIN
  7. ROCEPHIN [Concomitant]
     Active Substance: CEFTRIAXONE SODIUM
  8. BACLOFEN. [Concomitant]
     Active Substance: BACLOFEN
  9. DILAUDID [Concomitant]
     Active Substance: HYDROMORPHONE HYDROCHLORIDE
  10. VITAMIN D                          /00107901/ [Concomitant]
     Active Substance: ERGOCALCIFEROL
  11. FLUCONAZOLE. [Concomitant]
     Active Substance: FLUCONAZOLE
  12. LYRICA [Concomitant]
     Active Substance: PREGABALIN
  13. ZOLOFT [Concomitant]
     Active Substance: SERTRALINE HYDROCHLORIDE
  14. MELATONIN [Concomitant]
     Active Substance: MELATONIN
  15. VITAMIN C [Concomitant]
     Active Substance: ASCORBIC ACID
  16. COUGH SYRUP [Concomitant]
     Active Substance: DEXTROMETHORPHAN HYDROBROMIDE\GUAIFENESIN
  17. PROGESTERONE. [Concomitant]
     Active Substance: PROGESTERONE
  18. CEPHALEXIN                         /00145501/ [Concomitant]
     Active Substance: CEPHALEXIN
  19. AVELOX [Concomitant]
     Active Substance: MOXIFLOXACIN HYDROCHLORIDE
  20. TUSSIONEX                          /00004701/ [Concomitant]
     Active Substance: BROMHEXINE
  21. POTASSIUM [Concomitant]
     Active Substance: POTASSIUM
  22. LIDOCAINE/PRILOCAINE [Concomitant]
     Active Substance: LIDOCAINE\PRILOCAINE
  23. ADVAIR HFA [Concomitant]
     Active Substance: FLUTICASONE PROPIONATE\SALMETEROL XINAFOATE
  24. ZYRTEC [Concomitant]
     Active Substance: CETIRIZINE HYDROCHLORIDE
  25. AZITHROMYCIN ANHYDROUS. [Concomitant]
     Active Substance: AZITHROMYCIN ANHYDROUS
  26. FISH OIL [Concomitant]
     Active Substance: FISH OIL
  27. PRENATAL VITAMINS                  /02014401/ [Concomitant]
     Active Substance: VITAMINS
  28. SINGULAIR [Concomitant]
     Active Substance: MONTELUKAST SODIUM
  29. TYLENOL [Concomitant]
     Active Substance: ACETAMINOPHEN
  30. HIZENTRA [Suspect]
     Active Substance: HUMAN IMMUNOGLOBULIN G
     Indication: IMMUNODEFICIENCY COMMON VARIABLE
     Dosage: 8 G, UNK
     Route: 058
  31. IBUPROFEN. [Concomitant]
     Active Substance: IBUPROFEN
  32. VALTREX [Concomitant]
     Active Substance: VALACYCLOVIR HYDROCHLORIDE
  33. AUGMENTIN [Concomitant]
     Active Substance: AMOXICILLIN\CLAVULANATE POTASSIUM

REACTIONS (2)
  - Candida infection [Unknown]
  - Oral herpes [Unknown]
